FAERS Safety Report 24890769 (Version 3)
Quarter: 2025Q1

REPORT INFORMATION
  Report Type: Report from Study
  Country: US (occurrence: US)
  Receive Date: 20250127
  Receipt Date: 20250228
  Transmission Date: 20250409
  Serious: Yes (Other)
  Sender: ALEXION PHARMACEUTICALS
  Company Number: US-AstraZeneca-CH-00791942A

PATIENT

DRUGS (21)
  1. BENRALIZUMAB [Suspect]
     Active Substance: BENRALIZUMAB
     Route: 065
  2. BREZTRI [Suspect]
     Active Substance: BUDESONIDE\FORMOTEROL\GLYCOPYRROLATE
     Route: 065
  3. BUDESONIDE [Suspect]
     Active Substance: BUDESONIDE
     Route: 065
  4. OMEPRAZOLE [Suspect]
     Active Substance: OMEPRAZOLE
  5. ALBUTEROL [Concomitant]
     Active Substance: ALBUTEROL
     Route: 065
  6. TRELEGY ELLIPTA [Concomitant]
     Active Substance: FLUTICASONE FUROATE\UMECLIDINIUM BROMIDE\VILANTEROL TRIFENATATE
     Route: 065
  7. AZELASTINE [Concomitant]
     Active Substance: AZELASTINE
     Route: 065
  8. MONTELUKAST [Concomitant]
     Active Substance: MONTELUKAST
  9. GABAPENTIN [Concomitant]
     Active Substance: GABAPENTIN
  10. LEVOTHYROXINE [Concomitant]
     Active Substance: LEVOTHYROXINE
  11. CETIRIZINE HYDROCHLORIDE [Concomitant]
     Active Substance: CETIRIZINE HYDROCHLORIDE
  12. LIPITOR [Concomitant]
     Active Substance: ATORVASTATIN CALCIUM
  13. ELIQUIS [Concomitant]
     Active Substance: APIXABAN
  14. LASIX [Concomitant]
     Active Substance: FUROSEMIDE
  15. LOSARTAN [Concomitant]
     Active Substance: LOSARTAN
  16. TRIAMCINOLONE [Concomitant]
     Active Substance: TRIAMCINOLONE
  17. Epa [Concomitant]
  18. LAMOTRIGINE [Concomitant]
     Active Substance: LAMOTRIGINE
  19. VENLAFAXINE [Concomitant]
     Active Substance: VENLAFAXINE HYDROCHLORIDE
  20. PLAVIX [Concomitant]
     Active Substance: CLOPIDOGREL BISULFATE
     Route: 065
  21. COREG [Concomitant]
     Active Substance: CARVEDILOL

REACTIONS (2)
  - Cardiac disorder [Unknown]
  - Intervertebral disc degeneration [Unknown]
